FAERS Safety Report 4833644-3 (Version None)
Quarter: 2005Q4

REPORT INFORMATION
  Report Type: 
  Country: None (occurrence: None)
  Receive Date: 20051114
  Receipt Date: 20051101
  Transmission Date: 20060501
  Serious: Yes (Death, Life-Threatening, Hospitalization, Disabling, Other)
  Sender: FDA-Public Use
  Company Number: 430029M05USA

PATIENT
  Age: 58 Year
  Sex: Male
  Weight: 80.7403 kg

DRUGS (1)
  1. NOVANTRONE [Suspect]
     Indication: MULTIPLE SCLEROSIS
     Dates: end: 20040503

REACTIONS (6)
  - ACUTE PROMYELOCYTIC LEUKAEMIA [None]
  - ANAEMIA [None]
  - CONTUSION [None]
  - FATIGUE [None]
  - PLATELET COUNT DECREASED [None]
  - WHITE BLOOD CELL COUNT DECREASED [None]
